FAERS Safety Report 8895442 (Version 1)
Quarter: 2012Q4

REPORT INFORMATION
  Report Type: 
  Country: US (occurrence: US)
  Receive Date: 20121107
  Receipt Date: 20121107
  Transmission Date: 20130627
  Serious: Yes (Hospitalization, Other)
  Sender: FDA-Public Use
  Company Number: CHPA2012US022842

PATIENT
  Age: 53 Year
  Sex: Female

DRUGS (3)
  1. BENEFIBER W/ WHEAT DEXTRIN [Suspect]
     Indication: CONSTIPATION
     Dosage: 4 TSP per day as needed
     Route: 048
     Dates: start: 200904
  2. FLAXSEED OIL [Concomitant]
     Dosage: UNK, UNK
  3. VICODIN [Concomitant]
     Indication: PAIN
     Dosage: 1-2 tablets, Q6H
     Route: 048
     Dates: end: 2012

REACTIONS (10)
  - Tibia fracture [Recovered/Resolved]
  - Bunion [Recovered/Resolved]
  - Foot deformity [Recovered/Resolved]
  - Bone density decreased [Unknown]
  - Cognitive disorder [Unknown]
  - Constipation [Unknown]
  - Therapeutic response unexpected [Unknown]
  - Off label use [Unknown]
  - Incorrect dose administered [Unknown]
  - Expired drug administered [Unknown]
